FAERS Safety Report 5119847-1 (Version None)
Quarter: 2006Q4

REPORT INFORMATION
  Report Type: 
  Country: None (occurrence: None)
  Receive Date: 20061003
  Receipt Date: 20060928
  Transmission Date: 20070319
  Serious: Yes (Death)
  Sender: FDA-Public Use
  Company Number: FR-NOVOPROD-257368

PATIENT
  Age: 59 Year
  Sex: Male

DRUGS (1)
  1. NOVOSEVEN [Suspect]
     Dosage: 2 X 1.2 MG
     Dates: start: 20060609, end: 20060610

REACTIONS (3)
  - CARDIAC FAILURE [None]
  - ELECTROCARDIOGRAM ST-T SEGMENT ABNORMAL [None]
  - MYOCARDIAL INFARCTION [None]
